FAERS Safety Report 13045759 (Version 2)
Quarter: 2017Q1

REPORT INFORMATION
  Report Type: Spontaneous
  Country: TW (occurrence: TW)
  Receive Date: 20161220
  Receipt Date: 20170104
  Transmission Date: 20170428
  Serious: Yes (Death, Hospitalization, Other)
  Sender: FDA-Public Use
  Company Number: TW-ACTELION-A-CH2016-146794

PATIENT
  Age: 51 Year
  Sex: Female
  Weight: 68.5 kg

DRUGS (5)
  1. DIGOXIN. [Concomitant]
     Active Substance: DIGOXIN
  2. TRACLEER [Suspect]
     Active Substance: BOSENTAN
     Indication: PULMONARY ARTERIAL HYPERTENSION
     Dosage: UNK
     Route: 048
     Dates: start: 20160421, end: 20161102
  3. REVATIO [Concomitant]
     Active Substance: SILDENAFIL CITRATE
     Indication: PULMONARY ARTERIAL HYPERTENSION
  4. VENTAVIS [Concomitant]
     Active Substance: ILOPROST
     Indication: PULMONARY ARTERIAL HYPERTENSION
  5. WARFARIN [Concomitant]
     Active Substance: WARFARIN

REACTIONS (29)
  - Weight increased [Unknown]
  - Oedema [Unknown]
  - Sputum discoloured [Unknown]
  - Ventricular tachycardia [Unknown]
  - PaO2/FiO2 ratio decreased [Unknown]
  - Dyspnoea [Unknown]
  - Jaundice [Fatal]
  - Pyrexia [Unknown]
  - Urine output decreased [Unknown]
  - Fluid overload [Unknown]
  - Blood pressure decreased [Fatal]
  - Bacterial sepsis [Unknown]
  - Haemoptysis [Unknown]
  - Cardiac failure [Fatal]
  - Abdominal distension [Unknown]
  - Pleural effusion [Fatal]
  - Acute kidney injury [Unknown]
  - Pulmonary oedema [Unknown]
  - Pneumonia [Unknown]
  - Drug effect incomplete [Unknown]
  - Urinary tract infection [Unknown]
  - Oxygen saturation decreased [Fatal]
  - Atrial fibrillation [Fatal]
  - Mitral valve incompetence [Fatal]
  - Blood creatinine increased [Unknown]
  - Bacteraemia [Unknown]
  - Chest pain [Fatal]
  - Cardiopulmonary failure [Fatal]
  - Cardiomegaly [Fatal]

NARRATIVE: CASE EVENT DATE: 20161027
